FAERS Safety Report 4400921-X (Version None)
Quarter: 2004Q3

REPORT INFORMATION
  Report Type: 
  Country: None (occurrence: None)
  Receive Date: 20040907
  Receipt Date: 20030808
  Transmission Date: 20050211
  Serious: No
  Sender: FDA-Public Use
  Company Number: US-BRISTOL-MYERS SQUIBB COMPANY-12351797

PATIENT
  Age: 73 Year
  Sex: Male
  Weight: 84 kg

DRUGS (3)
  1. COUMADIN [Suspect]
     Indication: ATRIAL FIBRILLATION
     Dosage: DOSAGE: 1.25MG DAILY ALTERNATING WITH 2.5MG DAILY FOR ^YEARS^
     Route: 048
  2. ZOCOR [Concomitant]
  3. CORDARONE [Concomitant]

REACTIONS (2)
  - CONSTIPATION [None]
  - CONTUSION [None]
